FAERS Safety Report 15878874 (Version 1)
Quarter: 2019Q1

REPORT INFORMATION
  Report Type: Spontaneous
  Country: CA (occurrence: CA)
  Receive Date: 20190128
  Receipt Date: 20190128
  Transmission Date: 20190417
  Serious: Yes (Other)
  Sender: FDA-Public Use
  Company Number: CA-TEVA-2019-CA-1004752

PATIENT
  Age: 9 Year
  Sex: Male

DRUGS (3)
  1. PREDNISONE. [Suspect]
     Active Substance: PREDNISONE
     Indication: STILL^S DISEASE
     Route: 048
  2. PREDNISONE. [Suspect]
     Active Substance: PREDNISONE
     Route: 048
  3. ACTEMRA [Suspect]
     Active Substance: TOCILIZUMAB
     Indication: STILL^S DISEASE
     Route: 042

REACTIONS (3)
  - Blindness [Recovered/Resolved]
  - Papilloedema [Recovered/Resolved]
  - Intracranial pressure increased [Recovered/Resolved]
